FAERS Safety Report 9679979 (Version 2)
Quarter: 2013Q4

REPORT INFORMATION
  Report Type: Report from Study
  Country: MX (occurrence: MX)
  Receive Date: 20131110
  Receipt Date: 20131110
  Transmission Date: 20140711
  Serious: Yes (Other)
  Sender: FDA-Public Use
  Company Number: PHHY2013MX113163

PATIENT
  Age: 69 Year
  Sex: Female

DRUGS (6)
  1. STALEVO [Suspect]
     Indication: PARKINSON^S DISEASE
     Dosage: 1.5 DF(200/50/12.5 MG EACH TABLET), DAILY
     Route: 048
     Dates: start: 201305
  2. STALEVO [Suspect]
     Dosage: 0.25 DF, TID (200/50/12.5 MG)
     Route: 048
     Dates: start: 201309, end: 201310
  3. STALEVO [Suspect]
     Dosage: 0.5 DF, TID (200/50/12.5 MG)
     Route: 048
     Dates: start: 201310, end: 201310
  4. STALEVO [Suspect]
     Dosage: 0.25 DF, TID (200/50/12.5 G)
     Route: 048
     Dates: start: 201310
  5. NUBRENZA [Concomitant]
     Dosage: 1 DF, DAILY
     Dates: start: 200605
  6. FLUNARIZINE [Concomitant]
     Dosage: 0.5 DF, DAILY
     Dates: start: 2008

REACTIONS (6)
  - Multiple sclerosis [Unknown]
  - Concomitant disease progression [Unknown]
  - Dysphagia [Unknown]
  - Tracheal inflammation [Not Recovered/Not Resolved]
  - General physical health deterioration [Not Recovered/Not Resolved]
  - Wrong technique in drug usage process [Not Recovered/Not Resolved]
